FAERS Safety Report 5338468-9 (Version None)
Quarter: 2007Q2

REPORT INFORMATION
  Report Type: 
  Country: None (occurrence: None)
  Receive Date: 20070530
  Receipt Date: 20070522
  Transmission Date: 20071010
  Serious: Yes (Hospitalization)
  Sender: FDA-Public Use
  Company Number: FR-ROCHE-499035

PATIENT
  Age: 40 Year
  Sex: Male

DRUGS (7)
  1. CELLCEPT [Suspect]
     Indication: RENAL TRANSPLANT
     Route: 065
     Dates: start: 20050601, end: 20070520
  2. RENITEC [Concomitant]
  3. NEORAL [Concomitant]
     Dosage: DRUG STOPPED ON 1 MAY 2007 AND RESTARTED.
     Dates: start: 20070520
  4. CORTICOSTEROIDS [Concomitant]
  5. STATIN [Concomitant]
  6. AMLOR [Concomitant]
  7. ANGIOTENSIN CONVERTING ENZYME INHIBITOR [Concomitant]

REACTIONS (2)
  - ENCEPHALOPATHY [None]
  - MENINGITIS [None]
